FAERS Safety Report 13033214 (Version 1)
Quarter: 2016Q4

REPORT INFORMATION
  Report Type: Spontaneous
  Country: US (occurrence: US)
  Receive Date: 20161216
  Receipt Date: 20161216
  Transmission Date: 20170207
  Serious: Yes (Hospitalization, Other)
  Sender: FDA-Public Use
  Company Number: US-BRISTOL-MYERS SQUIBB COMPANY-BMS-2016-107553

PATIENT
  Age: 85 Year
  Sex: Female

DRUGS (1)
  1. WARFARIN SODIUM. [Suspect]
     Active Substance: WARFARIN SODIUM
     Indication: PERIPHERAL VASCULAR DISORDER
     Dosage: UNK
     Route: 065

REACTIONS (2)
  - International normalised ratio increased [Unknown]
  - Haematochezia [Unknown]
